FAERS Safety Report 23300790 (Version 1)
Quarter: 2023Q4

REPORT INFORMATION
  Report Type: Spontaneous
  Country: KR (occurrence: KR)
  Receive Date: 20231215
  Receipt Date: 20231215
  Transmission Date: 20240110
  Serious: Yes (Hospitalization)
  Sender: FDA-Public Use
  Company Number: KR-SA-SAC20231214000075

PATIENT
  Age: 67 Year
  Sex: Male
  Weight: 66 kg

DRUGS (17)
  1. ASPIRIN [Suspect]
     Active Substance: ASPIRIN
     Indication: Cerebral infarction
     Dosage: 100 MG, QD
     Route: 048
     Dates: start: 20230111, end: 20230312
  2. PLAVIX [Suspect]
     Active Substance: CLOPIDOGREL BISULFATE
     Indication: Cerebral infarction
     Dosage: 75MG
     Route: 048
     Dates: start: 20230111, end: 20230312
  3. CILOSTAZOL [Suspect]
     Active Substance: CILOSTAZOL
     Indication: Cerebral infarction
     Dosage: UNK
     Route: 048
     Dates: start: 20230111, end: 20230312
  4. GINKGO BILOBA LEAF EXTRACT [Concomitant]
     Active Substance: GINKGO BILOBA LEAF EXTRACT
     Dosage: UNK
  5. MAGNESIUM OXIDE [Concomitant]
     Active Substance: MAGNESIUM OXIDE
     Indication: Constipation prophylaxis
     Dosage: UNK
     Route: 048
     Dates: start: 20230110
  6. THEOBROMINE [Concomitant]
     Active Substance: THEOBROMINE
     Indication: Chronic obstructive pulmonary disease
     Dosage: UNK
     Route: 048
     Dates: start: 20221128
  7. CETIRIZINE HYDROCHLORIDE [Concomitant]
     Active Substance: CETIRIZINE HYDROCHLORIDE
     Indication: Chronic obstructive pulmonary disease
     Dosage: UNK
     Route: 048
     Dates: start: 20221128
  8. CETIRIZINE HYDROCHLORIDE [Concomitant]
     Active Substance: CETIRIZINE HYDROCHLORIDE
     Indication: Vitamin supplementation
     Dosage: UNK
     Route: 042
     Dates: start: 20230316, end: 20230317
  9. CHOLINE ALFOSCERATE [Concomitant]
     Active Substance: CHOLINE ALFOSCERATE
     Indication: Cerebral infarction
     Dosage: UNK
     Route: 048
     Dates: start: 20220223
  10. CHOLINE ALFOSCERATE [Concomitant]
     Active Substance: CHOLINE ALFOSCERATE
     Dosage: UNK
     Route: 048
     Dates: start: 20230216
  11. TRAMADOL HYDROCHLORIDE [Concomitant]
     Active Substance: TRAMADOL HYDROCHLORIDE
     Indication: Back pain
     Dosage: UNK
     Route: 048
     Dates: start: 20230306, end: 20230308
  12. KETOROLAC TROMETHAMINE [Concomitant]
     Active Substance: KETOROLAC TROMETHAMINE
     Indication: Back pain
     Dosage: UNK
  13. AFLOQUALONE [Concomitant]
     Active Substance: AFLOQUALONE
     Indication: Back pain
     Dosage: UNK
  14. CHLORPHENIRAMINE MALEATE [Concomitant]
     Active Substance: CHLORPHENIRAMINE MALEATE
     Indication: Surgical preconditioning
     Dosage: UNK
     Route: 042
     Dates: start: 20230316, end: 20230316
  15. CHLORPHENIRAMINE MALEATE [Concomitant]
     Active Substance: CHLORPHENIRAMINE MALEATE
     Dosage: UNK
     Dates: start: 20230223, end: 20230223
  16. REBAMIPIDE [Concomitant]
     Active Substance: REBAMIPIDE
     Indication: Gastritis prophylaxis
     Dosage: UNK
     Route: 048
     Dates: start: 20230223
  17. CLOPIDOGREL BISULFATE [Concomitant]
     Active Substance: CLOPIDOGREL BISULFATE
     Indication: Cerebral infarction
     Dosage: UNK
     Route: 048
     Dates: start: 20230316

REACTIONS (1)
  - Dyskinesia [Recovered/Resolved]

NARRATIVE: CASE EVENT DATE: 20230316
